FAERS Safety Report 15424589 (Version 1)
Quarter: 2018Q3

REPORT INFORMATION
  Report Type: Spontaneous
  Country: QA (occurrence: QA)
  Receive Date: 20180925
  Receipt Date: 20180925
  Transmission Date: 20181010
  Serious: Yes (Hospitalization, Other)
  Sender: FDA-Public Use
  Company Number: QA-MACLEODS PHARMACEUTICALS US LTD-MAC2018016618

PATIENT

DRUGS (2)
  1. TRAMADOL HYDROCHLORIDE. [Suspect]
     Active Substance: TRAMADOL HYDROCHLORIDE
     Dosage: 100 MILLIGRAM, QD, DOSE ESCALATION
     Route: 065
  2. TRAMADOL HYDROCHLORIDE. [Suspect]
     Active Substance: TRAMADOL HYDROCHLORIDE
     Indication: BACK PAIN
     Dosage: 250 MILLIGRAM, QD, INCREASED DOSE
     Route: 065

REACTIONS (4)
  - Intentional product misuse [Recovered/Resolved]
  - Mania [Recovered/Resolved]
  - Drug withdrawal syndrome [Recovered/Resolved]
  - Psychotic disorder [Recovered/Resolved]
